FAERS Safety Report 4738138-1 (Version None)
Quarter: 2005Q3

REPORT INFORMATION
  Report Type: 
  Country: None (occurrence: None)
  Receive Date: 20050809
  Receipt Date: 20030120
  Transmission Date: 20060218
  Serious: Yes (Life-Threatening, Hospitalization, Disabling, Other)
  Sender: FDA-Public Use
  Company Number: US-MERCK-0301USA01866

PATIENT
  Age: 52 Year
  Sex: Male
  Weight: 103 kg

DRUGS (4)
  1. VIOXX [Suspect]
     Indication: BACK PAIN
     Route: 048
     Dates: start: 20001201
  2. VIOXX [Suspect]
     Route: 048
     Dates: start: 20020401, end: 20020901
  3. VIOXX [Suspect]
     Route: 048
     Dates: start: 20020901, end: 20020901
  4. ASPIRIN [Concomitant]
     Route: 065

REACTIONS (2)
  - CEREBROVASCULAR ACCIDENT [None]
  - HYPERTENSION [None]
